FAERS Safety Report 25563823 (Version 2)
Quarter: 2025Q3

REPORT INFORMATION
  Report Type: Spontaneous
  Country: US (occurrence: US)
  Receive Date: 20250716
  Receipt Date: 20250919
  Transmission Date: 20251021
  Serious: Yes (Hospitalization, Other)
  Sender: AZURITY PHARMACEUTICALS
  Company Number: US-AZURITY PHARMACEUTICALS, INC.-AZR202507-001877

PATIENT
  Sex: Female

DRUGS (2)
  1. DANZITEN [Suspect]
     Active Substance: NILOTINIB
     Indication: Philadelphia positive chronic myeloid leukaemia
     Route: 048
     Dates: start: 20250603
  2. DANZITEN [Suspect]
     Active Substance: NILOTINIB
     Route: 048
     Dates: start: 20250603, end: 20250904

REACTIONS (13)
  - Cholelithiasis [Recovered/Resolved]
  - Hospitalisation [Unknown]
  - Diabetes mellitus [Unknown]
  - Fatigue [Unknown]
  - Vomiting [Unknown]
  - Abdominal pain [Unknown]
  - Increased appetite [Unknown]
  - Dyspnoea [Unknown]
  - Back pain [Unknown]
  - Weight increased [Unknown]
  - Pain [Unknown]
  - Headache [Unknown]
  - Nausea [Unknown]
